FAERS Safety Report 8450205-8 (Version None)
Quarter: 2012Q2

REPORT INFORMATION
  Report Type: 
  Country: None (occurrence: None)
  Receive Date: 20120614
  Receipt Date: 20120614
  Transmission Date: 20120825
  Serious: Yes (Other)
  Sender: FDA-Public Use
  Company Number: None

PATIENT
  Age: 61 Year
  Sex: Male
  Weight: 70.3075 kg

DRUGS (1)
  1. DOXYCYCLINE HYCLATE [Suspect]
     Indication: PROSTATITIS
     Dosage: 100 MG CAPSULE TWICE PER DAY PO
     Route: 048
     Dates: start: 20120606, end: 20120610

REACTIONS (4)
  - DRUG HYPERSENSITIVITY [None]
  - BLISTER [None]
  - BURNS SECOND DEGREE [None]
  - CHEMICAL INJURY [None]
